FAERS Safety Report 25508714 (Version 1)
Quarter: 2025Q3

REPORT INFORMATION
  Report Type: Spontaneous
  Country: EU (occurrence: EU)
  Receive Date: 20250703
  Receipt Date: 20250703
  Transmission Date: 20251021
  Serious: Yes (Other)
  Sender: AMGEN
  Company Number: EU-AMGEN-BELSP2025099039

PATIENT
  Sex: Male

DRUGS (1)
  1. OTEZLA [Suspect]
     Active Substance: APREMILAST
     Indication: Product used for unknown indication
     Route: 065

REACTIONS (6)
  - Spinal fracture [Unknown]
  - Multiple fractures [Unknown]
  - Hypophosphataemic osteomalacia [Unknown]
  - Arthralgia [Unknown]
  - Rib fracture [Unknown]
  - Pelvic girdle pain [Unknown]
